FAERS Safety Report 10691340 (Version 1)
Quarter: 2015Q1

REPORT INFORMATION
  Report Type: Spontaneous
  Country: FR (occurrence: FR)
  Receive Date: 20150105
  Receipt Date: 20150105
  Transmission Date: 20150720
  Serious: Yes (Other)
  Sender: FDA-Public Use
  Company Number: FR-GALDERMA-FR14004779

PATIENT
  Age: 37 Year

DRUGS (1)
  1. MIRVASO [Suspect]
     Active Substance: BRIMONIDINE TARTRATE
     Indication: ERYTHROSIS
     Dosage: 0.33%
     Route: 061
     Dates: start: 20140917, end: 20141211

REACTIONS (7)
  - Product use issue [Recovered/Resolved]
  - Application site burn [None]
  - Thermal burn [Not Recovered/Not Resolved]
  - Pruritus [Not Recovered/Not Resolved]
  - Application site erythema [None]
  - Application site pruritus [None]
  - Erythema [Not Recovered/Not Resolved]

NARRATIVE: CASE EVENT DATE: 20141211
